FAERS Safety Report 10351478 (Version 2)
Quarter: 2014Q3

REPORT INFORMATION
  Report Type: Spontaneous
  Country: GB (occurrence: GB)
  Receive Date: 20140730
  Receipt Date: 20140821
  Transmission Date: 20150326
  Serious: Yes (Death, Hospitalization)
  Sender: FDA-Public Use
  Company Number: PHHY2014GB090429

PATIENT
  Age: 65 Year
  Sex: Male
  Weight: 90 kg

DRUGS (22)
  1. BISOPROLOL FUMARATE. [Concomitant]
     Active Substance: BISOPROLOL FUMARATE
  2. NICORANDIL [Concomitant]
     Active Substance: NICORANDIL
  3. LORATADINE. [Concomitant]
     Active Substance: LORATADINE
  4. PREDNISOLONE. [Concomitant]
     Active Substance: PREDNISOLONE
  5. SPIRIVA [Concomitant]
     Active Substance: TIOTROPIUM BROMIDE MONOHYDRATE
  6. DOXYCYCLINE. [Concomitant]
     Active Substance: DOXYCYCLINE
  7. AZITHROMYCIN [Suspect]
     Active Substance: AZITHROMYCIN ANHYDROUS
     Indication: RESPIRATORY TRACT INFECTION
     Dosage: 250 MG, UNK
     Route: 048
     Dates: start: 20140630
  8. FLUTICASONE PROPIONATE. [Concomitant]
     Active Substance: FLUTICASONE PROPIONATE
  9. WARFARIN SODIUM. [Concomitant]
     Active Substance: WARFARIN SODIUM
  10. FLUCLOXACILLIN [Concomitant]
     Active Substance: FLUCLOXACILLIN
  11. NITROLINGUAL [Concomitant]
     Active Substance: NITROGLYCERIN
  12. SERETIDE [Concomitant]
     Active Substance: FLUTICASONE FUROATE\SALMETEROL XINAFOATE
  13. SIMVASTATIN. [Concomitant]
     Active Substance: SIMVASTATIN
  14. BUMETANIDE. [Concomitant]
     Active Substance: BUMETANIDE
  15. DOUBLEBASE [Concomitant]
     Active Substance: ISOPROPYL MYRISTATE\PARAFFIN
  16. DIPROBASE [Concomitant]
     Active Substance: CHLOROCRESOL
  17. OMEPRAZOLE. [Concomitant]
     Active Substance: OMEPRAZOLE
  18. SPIRONOLACTONE. [Concomitant]
     Active Substance: SPIRONOLACTONE
  19. IVABRADINE [Interacting]
     Active Substance: IVABRADINE
     Dosage: 7.5 MG, UNK
     Route: 048
     Dates: start: 20140630
  20. GLYCERYL TRINITRATE [Concomitant]
     Active Substance: NITROGLYCERIN
  21. PERINDOPRIL ERBUMINE. [Concomitant]
     Active Substance: PERINDOPRIL ERBUMINE
  22. VENTOLINE [Concomitant]
     Active Substance: ALBUTEROL

REACTIONS (4)
  - Drug interaction [Unknown]
  - Ventricular fibrillation [Fatal]
  - Drug dispensing error [Unknown]
  - Malaise [Not Recovered/Not Resolved]

NARRATIVE: CASE EVENT DATE: 20140630
